FAERS Safety Report 6072939-5 (Version None)
Quarter: 2009Q1

REPORT INFORMATION
  Report Type: 
  Country: None (occurrence: None)
  Receive Date: 20090205
  Receipt Date: 20080401
  Transmission Date: 20090719
  Serious: Yes (Other)
  Sender: FDA-Public Use
  Company Number: 2-0408-04

PATIENT
  Age: 84 Year
  Sex: Female

DRUGS (7)
  1. DERMA-SMOOTHE/FS [Suspect]
     Indication: ALOPECIA
     Dosage: TOPICAL
     Route: 061
  2. COUMADIN [Concomitant]
  3. FOSAMAX [Concomitant]
  4. SYNTHROID [Concomitant]
  5. METOPROLOL SUCCINATE [Concomitant]
  6. EVISTA [Concomitant]
  7. DIGOXIN [Concomitant]

REACTIONS (3)
  - PRURITUS [None]
  - SCAB [None]
  - SKIN EXFOLIATION [None]
